FAERS Safety Report 6924160-3 (Version None)
Quarter: 2010Q3

REPORT INFORMATION
  Report Type: 
  Country: None (occurrence: None)
  Receive Date: 20100812
  Receipt Date: 20100812
  Transmission Date: 20110219
  Serious: Yes (Death)
  Sender: FDA-Public Use
  Company Number: None

PATIENT
  Sex: Male
  Weight: 58.0604 kg

DRUGS (2)
  1. MELLARIL [Suspect]
     Dosage: 50 MG EVERY DAY AT HS PO
     Route: 048
     Dates: start: 20070801, end: 20090526
  2. LITHIUM CARBONATE [Suspect]
     Dosage: 300 MG TWICE PER DAY PO
     Route: 048
     Dates: start: 20070801, end: 20090526

REACTIONS (9)
  - ASPIRATION [None]
  - DECREASED APPETITE [None]
  - DYSPHAGIA [None]
  - NEUROMYOPATHY [None]
  - OESOPHAGEAL OBSTRUCTION [None]
  - OESOPHAGITIS [None]
  - SCHIZOPHRENIA [None]
  - UNEVALUABLE EVENT [None]
  - WEIGHT DECREASED [None]
